FAERS Safety Report 24094273 (Version 1)
Quarter: 2024Q3

REPORT INFORMATION
  Report Type: Spontaneous
  Country: RO (occurrence: RO)
  Receive Date: 20240716
  Receipt Date: 20240716
  Transmission Date: 20241016
  Serious: Yes (Hospitalization, Other)
  Sender: TEVA
  Company Number: RO-TEVA-VS-3216446

PATIENT
  Age: 23 Year
  Sex: Female

DRUGS (1)
  1. OSELTAMIVIR [Suspect]
     Active Substance: OSELTAMIVIR
     Indication: Antiviral treatment
     Dosage: TWO DOSES
     Route: 065

REACTIONS (9)
  - Anaphylactic reaction [Recovering/Resolving]
  - Periorbital oedema [Recovering/Resolving]
  - Hypotension [Recovering/Resolving]
  - Tachycardia [Recovering/Resolving]
  - Diarrhoea [Recovering/Resolving]
  - Respiratory failure [Recovering/Resolving]
  - Drug hypersensitivity [Recovering/Resolving]
  - Shock symptom [Recovering/Resolving]
  - Generalised oedema [Recovering/Resolving]
